FAERS Safety Report 7543395-2 (Version None)
Quarter: 2011Q2

REPORT INFORMATION
  Report Type: 
  Country: None (occurrence: None)
  Receive Date: 20110613
  Receipt Date: 20110530
  Transmission Date: 20111010
  Serious: Yes (Other)
  Sender: FDA-Public Use
  Company Number: CA-JNJFOC-20110600911

PATIENT
  Sex: Female
  Weight: 49 kg

DRUGS (1)
  1. REMICADE [Suspect]
     Indication: CROHN'S DISEASE
     Dosage: 100MG/ML
     Route: 042
     Dates: start: 20100101

REACTIONS (4)
  - CONTUSION [None]
  - MUSCULOSKELETAL DISCOMFORT [None]
  - NODULE [None]
  - FALL [None]
